FAERS Safety Report 4617740-1 (Version None)
Quarter: 2005Q1

REPORT INFORMATION
  Report Type: 
  Country: None (occurrence: None)
  Receive Date: 20050322
  Receipt Date: 20050310
  Transmission Date: 20050727
  Serious: Yes (Hospitalization)
  Sender: FDA-Public Use
  Company Number: 106182ISR

PATIENT
  Age: 48 Year
  Sex: Female

DRUGS (3)
  1. FLUOROURACIL [Suspect]
     Indication: BREAST CANCER
     Dosage: 750 INTRAVENOUS (NOS)
     Route: 042
  2. CYCLOPHOSPHAMIDE [Suspect]
     Indication: BREAST CANCER
     Dosage: 75 ORAL
     Route: 048
  3. EPIRUBICIN [Suspect]
     Indication: BREAST CANCER
     Dosage: 90 INTRAVENOUS (NOS)
     Route: 042

REACTIONS (2)
  - FEBRILE NEUTROPENIA [None]
  - INFLUENZA [None]
